FAERS Safety Report 8549459-9 (Version None)
Quarter: 2012Q3

REPORT INFORMATION
  Report Type: 
  Country: None (occurrence: None)
  Receive Date: 20120730
  Receipt Date: 20120725
  Transmission Date: 20120928
  Serious: No
  Sender: FDA-Public Use
  Company Number: US-B.I. PHARMACEUTICALS,INC./RIDGEFIELD-2012-BP-00686BP

PATIENT
  Sex: Male

DRUGS (6)
  1. LOVAZA [Concomitant]
  2. TOPROL-XL [Concomitant]
     Indication: CARDIAC DISORDER
  3. GABAPENTIN [Concomitant]
     Indication: ARTHRALGIA
     Dosage: 900 MG
     Route: 048
     Dates: start: 20111014
  4. TOPROL-XL [Concomitant]
     Indication: HYPERTENSION
     Dosage: 25 MG
     Route: 048
     Dates: start: 20050101
  5. PRADAXA [Suspect]
     Indication: ATRIAL FIBRILLATION
     Dosage: 300 MG
     Route: 048
     Dates: start: 20111201
  6. MULTI-VITAMIN [Concomitant]

REACTIONS (5)
  - ARTHRITIS [None]
  - BACK PAIN [None]
  - JOINT SWELLING [None]
  - DIARRHOEA [None]
  - ARTHRALGIA [None]
